FAERS Safety Report 7608754-8 (Version None)
Quarter: 2011Q3

REPORT INFORMATION
  Report Type: 
  Country: None (occurrence: None)
  Receive Date: 20110714
  Receipt Date: 20110714
  Transmission Date: 20111222
  Serious: Yes (Life-Threatening)
  Sender: FDA-Public Use
  Company Number: None

PATIENT
  Age: 21 Year
  Sex: Male
  Weight: 56.4 kg

DRUGS (2)
  1. VANCOMYCIN [Suspect]
     Indication: PNEUMONIA STAPHYLOCOCCAL
     Dosage: 1GM
     Route: 041
     Dates: start: 20110707, end: 20110707
  2. BENADRYL [Interacting]
     Route: 042

REACTIONS (4)
  - HYPOTENSION [None]
  - MALAISE [None]
  - PRURITUS [None]
  - PHARYNGEAL OEDEMA [None]
